FAERS Safety Report 8809837 (Version 2)
Quarter: 2012Q4

REPORT INFORMATION
  Report Type: 
  Country: US (occurrence: US)
  Receive Date: 20120926
  Receipt Date: 20121008
  Transmission Date: 20130627
  Serious: Yes (Hospitalization)
  Sender: FDA-Public Use
  Company Number: US-ACTELION-A-US2012-71599

PATIENT
  Age: 44 Year
  Sex: Female

DRUGS (1)
  1. VELETRI [Suspect]
     Indication: PULMONARY ARTERIAL HYPERTENSION
     Dosage: 10 ng/kg, per min
     Route: 042
     Dates: start: 20120228

REACTIONS (4)
  - Diabetes mellitus [Recovering/Resolving]
  - Polyuria [Recovering/Resolving]
  - Asthenia [Recovering/Resolving]
  - Hyperglycaemia [Recovering/Resolving]
